FAERS Safety Report 9403180 (Version 1)
Quarter: 2013Q3

REPORT INFORMATION
  Report Type: Spontaneous
  Country: US (occurrence: US)
  Receive Date: 20130716
  Receipt Date: 20130716
  Transmission Date: 20140515
  Serious: Yes (Other)
  Sender: FDA-Public Use
  Company Number: US-UCBSA-091326

PATIENT
  Sex: Male

DRUGS (5)
  1. NEUPRO [Suspect]
     Indication: PARKINSON^S DISEASE
     Dosage: 4 MG
     Route: 062
  2. DITROPAN [Concomitant]
  3. REQUIP [Concomitant]
  4. SINEMET CR [Concomitant]
     Dosage: 25/100
  5. SINEMET CR [Concomitant]
     Dosage: SINEMET CR 50/200 AT BEDTIME TO HIS 25/100 QID REGIMEN

REACTIONS (2)
  - Parkinson^s disease [Not Recovered/Not Resolved]
  - Lumbar spinal stenosis [Not Recovered/Not Resolved]
